FAERS Safety Report 7649018-6 (Version None)
Quarter: 2011Q3

REPORT INFORMATION
  Report Type: 
  Country: None (occurrence: None)
  Receive Date: 20110802
  Receipt Date: 20110722
  Transmission Date: 20111222
  Serious: Yes (Other)
  Sender: FDA-Public Use
  Company Number: AR-AMGEN-ARGSP2011038027

PATIENT
  Age: 45 Year
  Sex: Female

DRUGS (1)
  1. ENBREL [Suspect]
     Indication: RHEUMATOID ARTHRITIS
     Dosage: 50 MG EVERY 15 DAYS
     Dates: start: 20050303, end: 20110601

REACTIONS (2)
  - EXPIRED DRUG ADMINISTERED [None]
  - URINARY TRACT INFECTION [None]
